FAERS Safety Report 8488766-5 (Version None)
Quarter: 2012Q2

REPORT INFORMATION
  Report Type: 
  Country: None (occurrence: None)
  Receive Date: 20120626
  Receipt Date: 20120611
  Transmission Date: 20120825
  Serious: Yes (Other)
  Sender: FDA-Public Use
  Company Number: JP-20120032

PATIENT
  Age: 54 Year
  Sex: Male

DRUGS (2)
  1. CISPLATIN [Suspect]
     Indication: THERAPEUTIC EMBOLISATION
     Dosage: 120 MG (120 MG,1 IN 1 D) INTRA-ARTERIAL
     Route: 013
  2. 10ML (LIPIODOL ULTRA FLUIDE) (ETHIODIZED OIL),UNKNOWN [Suspect]
     Indication: THERAPEUTIC EMBOLISATION
     Dosage: INTRA-ARTERIAL
     Route: 013

REACTIONS (8)
  - HYPERKALAEMIA [None]
  - METABOLIC ACIDOSIS [None]
  - OLIGURIA [None]
  - BLOOD CREATININE INCREASED [None]
  - TUMOUR LYSIS SYNDROME [None]
  - OFF LABEL USE [None]
  - HAEMATURIA [None]
  - HEPATIC INFARCTION [None]
